FAERS Safety Report 10387968 (Version 1)
Quarter: 2014Q1

REPORT INFORMATION
  Report Type: Spontaneous
  Country: US (occurrence: None)
  Receive Date: 20140306
  Receipt Date: 20140306
  Transmission Date: 20141002
  Serious: Yes (Other)
  Sender: FDA-Public Use
  Company Number: 163-21880-13110324

PATIENT
  Age: 85 Year
  Sex: Female
  Weight: 63.9 kg

DRUGS (9)
  1. REVLIMID (LENALIDOMIDE) (CAPSULES) [Suspect]
     Indication: MYELODYSPLASTIC SYNDROME
     Route: 048
     Dates: start: 201109
  2. AZITHROMYCIN [Concomitant]
  3. DOCUSATE SODIUM [Concomitant]
  4. GABAPENTIN [Concomitant]
  5. HYDROCODONE/ACETAMINOPHEN (REMEDEINE) [Concomitant]
  6. LEVOTHYROXINE [Concomitant]
  7. LORAZEPAM [Concomitant]
  8. QUININE SULFATE [Concomitant]
  9. RANITIDINE [Concomitant]

REACTIONS (2)
  - Pancytopenia [None]
  - Arthritis infective [None]
